FAERS Safety Report 21661378 (Version 1)
Quarter: 2022Q4

REPORT INFORMATION
  Report Type: Spontaneous
  Country: US (occurrence: None)
  Receive Date: 20221130
  Receipt Date: 20221130
  Transmission Date: 20230112
  Serious: No
  Sender: FDA-Public Use
  Company Number: 2022A361918

PATIENT
  Sex: Female
  Weight: 59 kg

DRUGS (13)
  1. TAGRISSO [Suspect]
     Active Substance: OSIMERTINIB
     Indication: Non-small cell lung cancer
     Route: 048
     Dates: start: 202001
  2. MAGNESIUM [Concomitant]
     Active Substance: MAGNESIUM
     Indication: Muscle disorder
  3. FAMOTIDINE [Concomitant]
     Active Substance: FAMOTIDINE
     Indication: Gastrooesophageal reflux disease
  4. WOMENS MULTI-VITAMIN [Concomitant]
  5. BIOTIN [Concomitant]
     Active Substance: BIOTIN
     Indication: Hair disorder
  6. PROBIOTICS NOS [Concomitant]
     Active Substance: PROBIOTICS NOS
  7. CLARITIN [Concomitant]
     Active Substance: LORATADINE
     Indication: Sinus disorder
  8. FLONASE SPRAYS [Concomitant]
     Indication: Sinus disorder
  9. VITAMIN D3 [Concomitant]
     Active Substance: CHOLECALCIFEROL
  10. ATORVASTATIN [Concomitant]
     Active Substance: ATORVASTATIN
  11. SERTRALINE [Concomitant]
     Active Substance: SERTRALINE HYDROCHLORIDE
     Indication: Hot flush
  12. CITRACEL [Concomitant]
     Indication: Abdominal discomfort
  13. PROLIA [Concomitant]
     Active Substance: DENOSUMAB
     Indication: Osteoporosis

REACTIONS (7)
  - Myalgia [Unknown]
  - Muscle spasms [Unknown]
  - Oral mucosal discolouration [Unknown]
  - Musculoskeletal discomfort [Unknown]
  - Musculoskeletal discomfort [Unknown]
  - Spinal fracture [Unknown]
  - Osteoporosis [Unknown]
